FAERS Safety Report 4893435-4 (Version None)
Quarter: 2006Q1

REPORT INFORMATION
  Report Type: 
  Country: None (occurrence: None)
  Receive Date: 20060127
  Receipt Date: 20060117
  Transmission Date: 20060701
  Serious: Yes (Hospitalization, Other)
  Sender: FDA-Public Use
  Company Number: FR-BRISTOL-MYERS SQUIBB COMPANY-13251301

PATIENT
  Age: 70 Year
  Sex: Female

DRUGS (7)
  1. ELISOR TABS [Suspect]
     Route: 048
  2. PLAVIX [Suspect]
  3. TRIATEC [Suspect]
  4. KARDEGIC [Suspect]
  5. ACTONEL [Suspect]
     Dates: start: 20051001
  6. DETENSIEL [Suspect]
  7. LEVOTHYROX [Concomitant]
     Dates: start: 20051001

REACTIONS (6)
  - BLOOD ALKALINE PHOSPHATASE INCREASED [None]
  - CHOLESTASIS [None]
  - FRACTURE [None]
  - GAMMA-GLUTAMYLTRANSFERASE INCREASED [None]
  - MYOCARDIAL INFARCTION [None]
  - THROMBOCYTOPENIA [None]
